FAERS Safety Report 10055150 (Version 2)
Quarter: 2014Q2

REPORT INFORMATION
  Report Type: Spontaneous
  Country: US (occurrence: US)
  Receive Date: 20140402
  Receipt Date: 20140625
  Transmission Date: 20141212
  Serious: No
  Sender: FDA-Public Use
  Company Number: US-SA-2014SA028166

PATIENT
  Age: 26 Year
  Sex: Female

DRUGS (5)
  1. AUBAGIO [Suspect]
     Indication: MULTIPLE SCLEROSIS
     Route: 048
     Dates: start: 20131210
  2. AMITRIPTYLINE [Concomitant]
  3. XANAX [Concomitant]
  4. MECLIZINE [Concomitant]
  5. KLONOPIN [Concomitant]

REACTIONS (1)
  - Alopecia [Unknown]
